FAERS Safety Report 6750126-2 (Version None)
Quarter: 2010Q2

REPORT INFORMATION
  Report Type: 
  Country: None (occurrence: None)
  Receive Date: 20100601
  Receipt Date: 20100526
  Transmission Date: 20101027
  Serious: Yes (Hospitalization)
  Sender: FDA-Public Use
  Company Number: US-CEPHALON-2010002937

PATIENT
  Sex: Male
  Weight: 81 kg

DRUGS (15)
  1. TRISENOX [Suspect]
     Indication: MYELOFIBROSIS
     Route: 048
     Dates: start: 20100518, end: 20100524
  2. MAG PLUS PROTEIN [Concomitant]
  3. ENALAPRIL [Concomitant]
  4. VITAMIN C [Concomitant]
  5. VITAMIN D [Concomitant]
  6. FOLIC ACID [Concomitant]
  7. SPIRIVA [Concomitant]
  8. METOPROLOL TARTRATE [Concomitant]
  9. FINASTERIDE [Concomitant]
  10. JANUVIA [Concomitant]
  11. SIMVASTATIN [Concomitant]
  12. METOFORMIN [Concomitant]
  13. FISH OIL [Concomitant]
  14. NIACIN [Concomitant]
  15. ALLOPURINOL [Concomitant]

REACTIONS (1)
  - LUNG INFILTRATION [None]
